FAERS Safety Report 4921094-0 (Version None)
Quarter: 2006Q1

REPORT INFORMATION
  Report Type: 
  Country: None (occurrence: None)
  Receive Date: 20060223
  Receipt Date: 20050105
  Transmission Date: 20060701
  Serious: Yes (Hospitalization)
  Sender: FDA-Public Use
  Company Number: US-MERCK-0501USA00601

PATIENT
  Age: 59 Year
  Sex: Male
  Weight: 105 kg

DRUGS (3)
  1. VIOXX [Suspect]
     Indication: ANALGESIC EFFECT
     Route: 048
     Dates: start: 20010621, end: 20010721
  2. VIOXX [Suspect]
     Route: 048
     Dates: start: 20011015, end: 20011115
  3. ASPIRIN [Concomitant]
     Route: 065

REACTIONS (13)
  - ABNORMAL BEHAVIOUR [None]
  - AGGRESSION [None]
  - CHEST PAIN [None]
  - DYSPNOEA EXERTIONAL [None]
  - GROIN PAIN [None]
  - KNEE ARTHROPLASTY [None]
  - MYOCARDIAL INFARCTION [None]
  - NEOPLASM PROSTATE [None]
  - OEDEMA [None]
  - OSTEOARTHRITIS [None]
  - PERIPHERAL VASCULAR DISORDER [None]
  - PERIRECTAL ABSCESS [None]
  - SPINAL OSTEOARTHRITIS [None]
